FAERS Safety Report 18298593 (Version 1)
Quarter: 2020Q3

REPORT INFORMATION
  Report Type: Spontaneous
  Country: DE (occurrence: DE)
  Receive Date: 20200922
  Receipt Date: 20200922
  Transmission Date: 20201103
  Serious: Yes (Death, Life-Threatening, Hospitalization, Other)
  Sender: FDA-Public Use
  Company Number: DE-009507513-2009DEU007366

PATIENT
  Age: 70 Year
  Sex: Female
  Weight: 103 kg

DRUGS (1)
  1. SITAGLIPTIN PHOSPHATE [Suspect]
     Active Substance: SITAGLIPTIN PHOSPHATE
     Indication: TYPE 2 DIABETES MELLITUS
     Dosage: 50 MG/TAG
     Route: 048
     Dates: start: 20200529, end: 20200531

REACTIONS (8)
  - Acute kidney injury [Unknown]
  - Laboratory test abnormal [Unknown]
  - Adverse reaction [Unknown]
  - Pancreatitis [Fatal]
  - Anuria [Unknown]
  - Abdominal pain [Fatal]
  - End stage renal disease [Unknown]
  - Sepsis [Unknown]

NARRATIVE: CASE EVENT DATE: 202006
